FAERS Safety Report 17462758 (Version 2)
Quarter: 2021Q3

REPORT INFORMATION
  Report Type: Report from Study
  Country: US (occurrence: US)
  Receive Date: 20200226
  Receipt Date: 20210730
  Transmission Date: 20211014
  Serious: Yes (Death, Hospitalization)
  Sender: FDA-Public Use
  Company Number: US-ASTRAZENECA-2020SE25832

PATIENT
  Sex: Female

DRUGS (1)
  1. TAGRISSO [Suspect]
     Active Substance: OSIMERTINIB
     Indication: LUNG CARCINOMA CELL TYPE UNSPECIFIED STAGE IV
     Dosage: UNKNOWN
     Route: 048
     Dates: start: 2019

REACTIONS (5)
  - Pulmonary oedema [Fatal]
  - Oxygen saturation decreased [Unknown]
  - Fatigue [Unknown]
  - Pleural effusion [Unknown]
  - Respiratory arrest [Fatal]
